FAERS Safety Report 5145269-3 (Version None)
Quarter: 2006Q4

REPORT INFORMATION
  Report Type: 
  Country: None (occurrence: None)
  Receive Date: 20061101
  Receipt Date: 20061016
  Transmission Date: 20070319
  Serious: Yes (Disabling)
  Sender: FDA-Public Use
  Company Number: 231795

PATIENT
  Sex: Female

DRUGS (4)
  1. HERCEPTIN [Suspect]
     Indication: DRUG USE FOR UNKNOWN INDICATION
  2. TAXOTERE [Suspect]
     Indication: DRUG USE FOR UNKNOWN INDICATION
     Dosage: 180 MG, INTRAVENOUS
     Dates: start: 20060119, end: 20060323
  3. CO-DYDRAMOL (ACETAMINOPHEN, DIHYDROCODEINE BITARTRATE) [Concomitant]
  4. DICLOFENAC SODIUM [Concomitant]

REACTIONS (5)
  - ARTHRALGIA [None]
  - HYPOAESTHESIA [None]
  - MYALGIA [None]
  - NEUROPATHY PERIPHERAL [None]
  - SKIN EXFOLIATION [None]
